FAERS Safety Report 7441628-4 (Version None)
Quarter: 2011Q2

REPORT INFORMATION
  Report Type: 
  Country: None (occurrence: None)
  Receive Date: 20110425
  Receipt Date: 20110425
  Transmission Date: 20111010
  Serious: Yes (Other)
  Sender: FDA-Public Use
  Company Number: None

PATIENT
  Age: 47 Year
  Sex: Female
  Weight: 68.0396 kg

DRUGS (1)
  1. MACROBID [Suspect]
     Indication: URINARY TRACT INFECTION
     Dosage: 100 MG 2/DAY PO
     Route: 048
     Dates: start: 20110416, end: 20110421

REACTIONS (9)
  - VAGINAL HAEMORRHAGE [None]
  - CHILLS [None]
  - DYSPNOEA [None]
  - PALPITATIONS [None]
  - COUGH [None]
  - BEDRIDDEN [None]
  - ABDOMINAL PAIN UPPER [None]
  - DIZZINESS [None]
  - PYREXIA [None]
